FAERS Safety Report 21045633 (Version 1)
Quarter: 2022Q3

REPORT INFORMATION
  Report Type: Spontaneous
  Country: US (occurrence: US)
  Receive Date: 20220706
  Receipt Date: 20220706
  Transmission Date: 20221027
  Serious: No
  Sender: FDA-Public Use
  Company Number: ENDG22-00090

PATIENT
  Age: 71 Year
  Sex: Female

DRUGS (1)
  1. CALCITONIN SALMON [Suspect]
     Active Substance: CALCITONIN SALMON
     Indication: Osteopenia
     Dosage: UNK UNKNOWN, UNKNOWN (ALTERNATING NOSTRILS)
     Route: 045
     Dates: start: 20211231, end: 20220102

REACTIONS (2)
  - Tic [Unknown]
  - Muscle twitching [Unknown]

NARRATIVE: CASE EVENT DATE: 20220101
